FAERS Safety Report 12683027 (Version 1)
Quarter: 2016Q3

REPORT INFORMATION
  Report Type: Spontaneous
  Country: US (occurrence: US)
  Receive Date: 20160825
  Receipt Date: 20160825
  Transmission Date: 20161109
  Serious: No
  Sender: FDA-Public Use
  Company Number: US-BAYER-2016-163587

PATIENT
  Age: 18 Year
  Sex: Male
  Weight: 49.89 kg

DRUGS (3)
  1. MIRALAX [Suspect]
     Active Substance: POLYETHYLENE GLYCOL 3350
     Indication: ENURESIS
     Dosage: 1 DF, QD
     Route: 048
  2. DESMOPRESSIN [Concomitant]
     Active Substance: DESMOPRESSIN
     Indication: ENURESIS
     Dosage: UNK
  3. IMIPRAMINE [Concomitant]
     Active Substance: IMIPRAMINE
     Indication: ENURESIS
     Dosage: UNK

REACTIONS (1)
  - Product use issue [None]
